FAERS Safety Report 20479545 (Version 1)
Quarter: 2022Q1

REPORT INFORMATION
  Report Type: Spontaneous
  Country: CN (occurrence: CN)
  Receive Date: 20220216
  Receipt Date: 20220216
  Transmission Date: 20220423
  Serious: Yes (Other)
  Sender: FDA-Public Use
  Company Number: CN-Merck Healthcare KGaA-9298958

PATIENT
  Age: 64 Year
  Sex: Female
  Weight: 48 kg

DRUGS (3)
  1. ERBITUX [Suspect]
     Active Substance: CETUXIMAB
     Indication: Neoplasm malignant
     Dosage: 450 MG, DAILY
     Route: 042
     Dates: start: 20220122, end: 20220122
  2. ERBITUX [Suspect]
     Active Substance: CETUXIMAB
     Dosage: 100 MG, DAILY
     Route: 042
     Dates: start: 20220122, end: 20220122
  3. CAPECITABINE [Suspect]
     Active Substance: CAPECITABINE
     Indication: Neoplasm malignant
     Dosage: 1.5 G, DAILY
     Route: 048
     Dates: start: 20220122, end: 20220205

REACTIONS (1)
  - Myelosuppression [Unknown]

NARRATIVE: CASE EVENT DATE: 20220124
